FAERS Safety Report 13887821 (Version 3)
Quarter: 2017Q4

REPORT INFORMATION
  Report Type: Spontaneous
  Country: US (occurrence: US)
  Receive Date: 20170821
  Receipt Date: 20171218
  Transmission Date: 20180320
  Serious: No
  Sender: FDA-Public Use
  Company Number: US-ACTELION-A-US2017-158344

PATIENT
  Age: 51 Year
  Sex: Male

DRUGS (1)
  1. VALCHLOR [Suspect]
     Active Substance: MECHLORETHAMINE
     Indication: MYCOSIS FUNGOIDES
     Dosage: UNK
     Route: 061
     Dates: start: 20170715

REACTIONS (5)
  - Visual impairment [Not Recovered/Not Resolved]
  - Erythema [Unknown]
  - Skin discolouration [Not Recovered/Not Resolved]
  - Dermatitis [Unknown]
  - Pruritus [Not Recovered/Not Resolved]
